FAERS Safety Report 5320198-0 (Version None)
Quarter: 2007Q2

REPORT INFORMATION
  Report Type: 
  Country: None (occurrence: None)
  Receive Date: 20070509
  Receipt Date: 20070504
  Transmission Date: 20071010
  Serious: Yes (Death, Hospitalization)
  Sender: FDA-Public Use
  Company Number: A0648608A

PATIENT
  Age: 66 Year
  Sex: Female

DRUGS (1)
  1. SEREVENT [Suspect]
     Indication: ASTHMA
     Route: 055
     Dates: start: 19960101, end: 20050415

REACTIONS (6)
  - ANOXIC ENCEPHALOPATHY [None]
  - ASTHMA [None]
  - INJURY ASPHYXIATION [None]
  - LUNG HYPERINFLATION [None]
  - PAIN [None]
  - RESPIRATORY ARREST [None]
